FAERS Safety Report 8448368-3 (Version None)
Quarter: 2012Q2

REPORT INFORMATION
  Report Type: 
  Country: None (occurrence: None)
  Receive Date: 20120619
  Receipt Date: 20120604
  Transmission Date: 20120825
  Serious: Yes (Other)
  Sender: FDA-Public Use
  Company Number: US-ROCHE-1074958

PATIENT
  Sex: Male
  Weight: 89.892 kg

DRUGS (5)
  1. CLONAZEPAM [Suspect]
     Indication: SLEEP DISORDER
  2. ROPINIROLE [Interacting]
     Indication: SLEEP DISORDER
  3. SEROQUEL [Interacting]
     Indication: SLEEP DISORDER
  4. CHANTIX [Interacting]
     Indication: EX-TOBACCO USER
     Route: 048
     Dates: start: 20120425, end: 20120512
  5. CHANTIX [Interacting]
     Route: 048
     Dates: start: 20120425, end: 20120512

REACTIONS (5)
  - DRUG INTERACTION [None]
  - FEELING ABNORMAL [None]
  - ABNORMAL BEHAVIOUR [None]
  - FEAR [None]
  - NIGHTMARE [None]
